FAERS Safety Report 5402194-8 (Version None)
Quarter: 2007Q3

REPORT INFORMATION
  Report Type: 
  Country: None (occurrence: None)
  Receive Date: 20070730
  Receipt Date: 20070718
  Transmission Date: 20080115
  Serious: Yes (Hospitalization)
  Sender: FDA-Public Use
  Company Number: 2007BI012863

PATIENT
  Age: 59 Year
  Sex: Female

DRUGS (1)
  1. AVONEX [Suspect]
     Indication: MULTIPLE SCLEROSIS
     Dosage: 30 US;QW;IM
     Route: 030
     Dates: start: 19990101

REACTIONS (3)
  - CEREBROVASCULAR ACCIDENT [None]
  - RUPTURED CEREBRAL ANEURYSM [None]
  - SUBARACHNOID HAEMORRHAGE [None]
